FAERS Safety Report 4954189-6 (Version None)
Quarter: 2006Q1

REPORT INFORMATION
  Report Type: 
  Country: None (occurrence: None)
  Receive Date: 20060327
  Receipt Date: 20050928
  Transmission Date: 20060701
  Serious: Yes (Hospitalization)
  Sender: FDA-Public Use
  Company Number: US-MERCK-0509USA04535

PATIENT
  Age: 36 Year
  Sex: Female
  Weight: 61 kg

DRUGS (1)
  1. VIOXX [Suspect]
     Indication: ARTHRITIS
     Route: 048
     Dates: start: 19990101, end: 20000101

REACTIONS (10)
  - ACUTE MYOCARDIAL INFARCTION [None]
  - ATRIAL FIBRILLATION [None]
  - BLOOD ELECTROLYTES ABNORMAL [None]
  - CORONARY ARTERY DISEASE [None]
  - FULL BLOOD COUNT [None]
  - GASTRIC DISORDER [None]
  - INJURY [None]
  - PARAESTHESIA [None]
  - SURGERY [None]
  - VERTIGO [None]
